FAERS Safety Report 23513431 (Version 2)
Quarter: 2024Q2

REPORT INFORMATION
  Report Type: Spontaneous
  Country: US (occurrence: US)
  Receive Date: 20240212
  Receipt Date: 20240419
  Transmission Date: 20240716
  Serious: Yes (Other)
  Sender: FDA-Public Use
  Company Number: US-PFIZER INC-PV202400018674

PATIENT
  Age: 75 Year
  Sex: Male
  Weight: 111.13 kg

DRUGS (1)
  1. VYNDAMAX [Suspect]
     Active Substance: TAFAMIDIS
     Indication: Amyloidosis
     Dosage: 61 MG ONCE A DAY
     Dates: start: 2022

REACTIONS (5)
  - Pulmonary oedema [Unknown]
  - Malaise [Unknown]
  - Influenza [Unknown]
  - Sinus pain [Unknown]
  - Fatigue [Unknown]
